FAERS Safety Report 6793213-5 (Version None)
Quarter: 2010Q2

REPORT INFORMATION
  Report Type: 
  Country: None (occurrence: None)
  Receive Date: 20100624
  Receipt Date: 20091022
  Transmission Date: 20101027
  Serious: Yes (Other)
  Sender: FDA-Public Use
  Company Number: US-MYLANLABS-2009S1014302

PATIENT
  Age: 55 Year
  Sex: Male

DRUGS (8)
  1. CLOZAPINE [Suspect]
     Dates: end: 20090908
  2. CLOZAPINE [Suspect]
  3. LITHIUM CARBONATE [Concomitant]
     Route: 048
  4. CLONAZEPAM [Concomitant]
     Route: 048
  5. FLUPHENAZINE [Concomitant]
     Route: 048
  6. BENZTROPINE MESYLATE [Concomitant]
     Route: 048
  7. RANITIDINE [Concomitant]
     Route: 048
  8. OXYBUTYNIN CHLORIDE [Concomitant]
     Route: 048

REACTIONS (2)
  - GRANULOCYTOPENIA [None]
  - LEUKOPENIA [None]
